FAERS Safety Report 12261780 (Version 3)
Quarter: 2016Q3

REPORT INFORMATION
  Report Type: Report from Study
  Country: US (occurrence: US)
  Receive Date: 20160413
  Receipt Date: 20160831
  Transmission Date: 20161109
  Serious: No
  Sender: FDA-Public Use
  Company Number: US-AMGEN-USASL2016042608

PATIENT
  Age: 68 Year
  Sex: Male

DRUGS (1)
  1. ENBREL [Suspect]
     Active Substance: ETANERCEPT
     Indication: RHEUMATOID ARTHRITIS
     Dosage: 50 MG, ONCE A WEEK
     Route: 065
     Dates: start: 20160208

REACTIONS (8)
  - Erythema [Unknown]
  - Drug ineffective [Unknown]
  - Injection site reaction [Unknown]
  - Arthralgia [Unknown]
  - Muscular weakness [Recovering/Resolving]
  - Pain in extremity [Unknown]
  - Feeling hot [Unknown]
  - Musculoskeletal stiffness [Recovering/Resolving]

NARRATIVE: CASE EVENT DATE: 2016
